FAERS Safety Report 7574282-1 (Version None)
Quarter: 2011Q2

REPORT INFORMATION
  Report Type: 
  Country: None (occurrence: None)
  Receive Date: 20110627
  Receipt Date: 20110616
  Transmission Date: 20111010
  Serious: Yes (Hospitalization)
  Sender: FDA-Public Use
  Company Number: US-JNJFOC-20110608605

PATIENT
  Sex: Male

DRUGS (1)
  1. TYLENOL W/ CODEINE NO. 3 [Suspect]
     Indication: PRODUCT USED FOR UNKNOWN INDICATION
     Route: 048

REACTIONS (2)
  - TRANSPLANT [None]
  - ADVERSE EVENT [None]
